FAERS Safety Report 6449655-0 (Version None)
Quarter: 2009Q4

REPORT INFORMATION
  Report Type: 
  Country: None (occurrence: None)
  Receive Date: 20091120
  Receipt Date: 20091113
  Transmission Date: 20100525
  Serious: Yes (Other)
  Sender: FDA-Public Use
  Company Number: PHHY2009BR50038

PATIENT
  Sex: Female

DRUGS (7)
  1. TRILEPTAL [Suspect]
     Indication: TRIGEMINAL NERVE DISORDER
     Dosage: 1 TABLET BID (MORNING AND NIGHT).
  2. TRILEPTAL [Suspect]
     Dosage: 2 TABLETS BID (MORNING AND NIGHT)
  3. BONIVA [Concomitant]
     Indication: OSTEOPOROSIS
     Dosage: 1 TABLET MONTHLY
     Dates: start: 20080101
  4. OS-CAL [Concomitant]
     Indication: OSTEOPOROSIS
     Dosage: 1 TABLET DAILY
     Dates: start: 20080101
  5. CLINFAR [Concomitant]
     Indication: BLOOD CHOLESTEROL INCREASED
     Dosage: 1 TABLET (10 MG) AT NIGHT
     Dates: start: 20090301
  6. CARBAMAZEPINE [Concomitant]
     Dosage: 1 TABLET (200 MG) DAILY
  7. CARBAMAZEPINE [Concomitant]
     Dosage: 3 TABLETS DAILY

REACTIONS (6)
  - FACIAL PAIN [None]
  - HYPERHIDROSIS [None]
  - HYSTERECTOMY [None]
  - LACRIMATION INCREASED [None]
  - TREMOR [None]
  - TRIGEMINAL NERVE DISORDER [None]
